FAERS Safety Report 19575188 (Version 2)
Quarter: 2021Q3

REPORT INFORMATION
  Report Type: Spontaneous
  Country: SK (occurrence: SK)
  Receive Date: 20210719
  Receipt Date: 20210802
  Transmission Date: 20211014
  Serious: Yes (Death, Hospitalization, Other)
  Sender: FDA-Public Use
  Company Number: SK-LUPIN PHARMACEUTICALS INC.-2021-12142

PATIENT
  Age: 33 Year
  Sex: Female

DRUGS (17)
  1. PROGESTERONE. [Suspect]
     Active Substance: PROGESTERONE
     Indication: HORMONE THERAPY
     Dosage: 400 MILLIGRAM, BID
     Route: 067
  2. VANCOMYCIN [Suspect]
     Active Substance: VANCOMYCIN
     Indication: COVID-19
     Dosage: UNK
     Route: 065
  3. AZATHIOPRINE. [Suspect]
     Active Substance: AZATHIOPRINE
     Indication: COLITIS ULCERATIVE
     Dosage: UNK
     Route: 065
  4. MESALAZINE [Concomitant]
     Active Substance: MESALAMINE
     Indication: COLITIS ULCERATIVE
     Dosage: UNK
     Route: 065
  5. LINEZOLID. [Suspect]
     Active Substance: LINEZOLID
     Indication: COVID-19
     Dosage: UNK
     Route: 065
  6. ESTRADIOL. [Suspect]
     Active Substance: ESTRADIOL
     Dosage: 6 MILLIGRAM, QD
     Route: 048
  7. FLUCONAZOLE. [Suspect]
     Active Substance: FLUCONAZOLE
     Indication: CANDIDA INFECTION
     Dosage: UNK
     Route: 065
  8. NORADRENALINE [Concomitant]
     Active Substance: NOREPINEPHRINE
     Indication: VASOPRESSIVE THERAPY
     Dosage: UNK
     Route: 065
  9. ESTRADIOL. [Suspect]
     Active Substance: ESTRADIOL
     Indication: HORMONE THERAPY
     Dosage: 3 MILLIGRAM
     Route: 048
  10. CEFUROXIME. [Suspect]
     Active Substance: CEFUROXIME
     Dosage: UNK
     Route: 065
  11. MEROPENEM. [Suspect]
     Active Substance: MEROPENEM
     Indication: COVID-19
     Dosage: UNK
     Route: 065
  12. DOPAMINE [Concomitant]
     Active Substance: DOPAMINE HYDROCHLORIDE
     Indication: VASOPRESSIVE THERAPY
     Dosage: UNK
     Route: 065
  13. AZITHROMYCIN ANHYDROUS. [Suspect]
     Active Substance: AZITHROMYCIN ANHYDROUS
     Indication: COVID-19
     Dosage: UNK
     Route: 065
  14. MOXIFLOXACIN HYDROCHLORIDE. [Suspect]
     Active Substance: MOXIFLOXACIN HYDROCHLORIDE
     Indication: COVID-19
     Dosage: UNK
     Route: 065
  15. CEFUROXIME. [Suspect]
     Active Substance: CEFUROXIME
     Indication: COVID-19
     Dosage: UNK
     Route: 065
  16. COLIMYCIN [Concomitant]
     Active Substance: COLISTIMETHATE SODIUM
     Indication: ACINETOBACTER INFECTION
     Dosage: UNK
     Route: 065
  17. DEXAMETHASONE. [Suspect]
     Active Substance: DEXAMETHASONE
     Indication: COVID-19
     Dosage: 4 MILLIGRAM
     Route: 065

REACTIONS (11)
  - Respiratory failure [Fatal]
  - Hepatotoxicity [Not Recovered/Not Resolved]
  - Ascites [Not Recovered/Not Resolved]
  - Septic shock [Fatal]
  - Drug ineffective for unapproved indication [Unknown]
  - Transaminases increased [Not Recovered/Not Resolved]
  - Hepatosplenomegaly [Not Recovered/Not Resolved]
  - Off label use [Unknown]
  - Hyperbilirubinaemia [Not Recovered/Not Resolved]
  - Myelosuppression [Not Recovered/Not Resolved]
  - Pneumonia [Fatal]
